FAERS Safety Report 6951119-2 (Version None)
Quarter: 2010Q3

REPORT INFORMATION
  Report Type: 
  Country: None (occurrence: None)
  Receive Date: 20100828
  Receipt Date: 20100309
  Transmission Date: 20110219
  Serious: No
  Sender: FDA-Public Use
  Company Number: US-ABBOTT-10P-163-0632178-00

PATIENT
  Weight: 82.628 kg

DRUGS (6)
  1. NIASPAN [Suspect]
     Indication: HIGH DENSITY LIPOPROTEIN DECREASED
     Dates: start: 20091001
  2. PRILOSEC [Concomitant]
     Indication: GASTROOESOPHAGEAL REFLUX DISEASE
  3. TERAZOSIN HYDROCHLORIDE [Concomitant]
     Indication: PROSTATOMEGALY
  4. INJECTABLE TESTOSTERONE [Concomitant]
     Indication: PRODUCT USED FOR UNKNOWN INDICATION
  5. PROSTOL [Concomitant]
     Indication: SUPPLEMENTATION THERAPY
  6. FINASTERIDE [Concomitant]
     Indication: PROSTATOMEGALY

REACTIONS (1)
  - FLUSHING [None]
